FAERS Safety Report 24267152 (Version 4)
Quarter: 2024Q4

REPORT INFORMATION
  Report Type: Spontaneous
  Country: US (occurrence: US)
  Receive Date: 20240830
  Receipt Date: 20241120
  Transmission Date: 20250115
  Serious: No
  Sender: BRISTOL-MYERS SQUIBB COMPANY
  Company Number: US-BRISTOL-MYERS SQUIBB COMPANY-2024-137833

PATIENT
  Age: 78 Year
  Sex: Female

DRUGS (4)
  1. POMALYST [Suspect]
     Active Substance: POMALIDOMIDE
     Indication: Plasma cell myeloma
     Route: 048
  2. POMALYST [Suspect]
     Active Substance: POMALIDOMIDE
     Route: 048
  3. POMALYST [Suspect]
     Active Substance: POMALIDOMIDE
     Route: 048
  4. POMALYST [Suspect]
     Active Substance: POMALIDOMIDE
     Route: 048

REACTIONS (10)
  - Epistaxis [Recovered/Resolved]
  - Off label use [Unknown]
  - Product dose omission in error [Unknown]
  - Blood pressure increased [Recovered/Resolved]
  - Product dose omission issue [Unknown]
  - Paraesthesia [Unknown]
  - Nasopharyngitis [Unknown]
  - Fatigue [Unknown]
  - Pain [Unknown]
  - Oral mucosal roughening [Unknown]
